FAERS Safety Report 4317229-3 (Version None)
Quarter: 2004Q1

REPORT INFORMATION
  Report Type: 
  Country: None (occurrence: None)
  Receive Date: 20040312
  Receipt Date: 20040302
  Transmission Date: 20041129
  Serious: Yes (Other)
  Sender: FDA-Public Use
  Company Number: 2004-03-0454

PATIENT
  Age: 55 Year
  Sex: Male

DRUGS (7)
  1. TEMODAL [Suspect]
     Indication: GLIOBLASTOMA
     Dosage: ORAL
     Route: 048
     Dates: start: 20020101, end: 20020501
  2. CORTICOSTEROID NOS [Suspect]
  3. SOLU-MEDROL [Suspect]
     Dosage: 120 MG INTRAVENOUS
     Route: 042
  4. CHEMOTHERAPY REGIMENS [Suspect]
     Indication: GLIOBLASTOMA
  5. RADIATION THERAPY [Concomitant]
  6. TEGRETOL [Concomitant]
  7. ZOPHREN (ONDANSETRON) [Concomitant]

REACTIONS (4)
  - BRAIN OEDEMA [None]
  - CUSHINGOID [None]
  - HEADACHE [None]
  - VOMITING [None]
